FAERS Safety Report 12690970 (Version 2)
Quarter: 2016Q3

REPORT INFORMATION
  Report Type: Spontaneous
  Country: CZ (occurrence: CZ)
  Receive Date: 20160826
  Receipt Date: 20160829
  Transmission Date: 20161109
  Serious: Yes (Other)
  Sender: FDA-Public Use
  Company Number: CZ-ALLERGAN-1666883US

PATIENT
  Age: 46 Year
  Sex: Female

DRUGS (2)
  1. LEVOSERT [Suspect]
     Active Substance: LEVONORGESTREL
     Indication: CONTRACEPTION
     Dosage: 52MG
     Route: 015
     Dates: start: 20160108
  2. SAYANA [Concomitant]
     Active Substance: MEDROXYPROGESTERONE
     Indication: CONTRACEPTION

REACTIONS (1)
  - Device dislocation [Unknown]

NARRATIVE: CASE EVENT DATE: 20160406
